FAERS Safety Report 21526210 (Version 1)
Quarter: 2022Q4

REPORT INFORMATION
  Report Type: Spontaneous
  Country: US (occurrence: US)
  Receive Date: 20221031
  Receipt Date: 20221031
  Transmission Date: 20230112
  Serious: Yes (Hospitalization, Other)
  Sender: FDA-Public Use
  Company Number: US-APOTEX-2022AP014874

PATIENT
  Sex: Female

DRUGS (2)
  1. METFORMIN [Suspect]
     Active Substance: METFORMIN HYDROCHLORIDE
     Indication: Product used for unknown indication
     Dosage: 90 GRAM
     Route: 048
  2. ACETAMINOPHEN\DIPHENHYDRAMINE HYDROCHLORIDE [Suspect]
     Active Substance: ACETAMINOPHEN\DIPHENHYDRAMINE HYDROCHLORIDE
     Indication: Product used for unknown indication
     Dosage: 60 DOSAGE FORM (60 TABLETS)
     Route: 065

REACTIONS (6)
  - Overdose [Unknown]
  - Anuria [Unknown]
  - Metabolic acidosis [Unknown]
  - Osmolar gap increased [Unknown]
  - Toxicity to various agents [Unknown]
  - Blood lactic acid increased [Recovering/Resolving]
